FAERS Safety Report 20765214 (Version 1)
Quarter: 2022Q2

REPORT INFORMATION
  Report Type: Spontaneous
  Country: US (occurrence: US)
  Receive Date: 20220428
  Receipt Date: 20220428
  Transmission Date: 20220721
  Serious: No
  Sender: FDA-Public Use
  Company Number: US-SA-SAC20220421001487

PATIENT
  Age: 41 Year
  Sex: Female

DRUGS (27)
  1. AUBAGIO [Suspect]
     Active Substance: TERIFLUNOMIDE
     Indication: Multiple sclerosis
     Dosage: 14 MG, QD
     Route: 048
     Dates: start: 2017
  2. AUBAGIO [Suspect]
     Active Substance: TERIFLUNOMIDE
     Dosage: 14 MG, QD
     Route: 048
     Dates: start: 20191012
  3. VITAMIN B2 [Concomitant]
     Active Substance: RIBOFLAVIN
  4. COUMADIN [Concomitant]
     Active Substance: WARFARIN SODIUM
  5. CALCITRIOL [Concomitant]
     Active Substance: CALCITRIOL
  6. SYNTHROID [Concomitant]
     Active Substance: LEVOTHYROXINE SODIUM
  7. REMODULIN [Concomitant]
     Active Substance: TREPROSTINIL
  8. EPINEPHRINE [Concomitant]
     Active Substance: EPINEPHRINE
     Dosage: 0.15MG/0.3 AUTO INJCT
  9. SINGULAIR [Concomitant]
     Active Substance: MONTELUKAST SODIUM
  10. ALLEGRA ALLERGY [Concomitant]
     Active Substance: FEXOFENADINE HYDROCHLORIDE
  11. XYZAL [Concomitant]
     Active Substance: LEVOCETIRIZINE DIHYDROCHLORIDE
  12. OMEPRAZOLE [Concomitant]
     Active Substance: OMEPRAZOLE
  13. XANAX [Concomitant]
     Active Substance: ALPRAZOLAM
  14. CELECOXIB [Concomitant]
     Active Substance: CELECOXIB
  15. BOTOX [Concomitant]
     Active Substance: ONABOTULINUMTOXINA
  16. TRILEPTAL [Concomitant]
     Active Substance: OXCARBAZEPINE
  17. REVATIO [Concomitant]
     Active Substance: SILDENAFIL CITRATE
  18. HYDROCHLOROTHIAZIDE [Concomitant]
     Active Substance: HYDROCHLOROTHIAZIDE
  19. VITAMIN D3 [Concomitant]
     Active Substance: CHOLECALCIFEROL
  20. NEURONTIN [Concomitant]
     Active Substance: GABAPENTIN
  21. TRACLEER [Concomitant]
     Active Substance: BOSENTAN
  22. IRON [Concomitant]
     Active Substance: IRON
  23. ALDACTONE [Concomitant]
     Active Substance: SPIRONOLACTONE
  24. CALCIUM CITRATE\CHOLECALCIFEROL [Concomitant]
     Active Substance: CALCIUM CITRATE\CHOLECALCIFEROL
     Dosage: 200
  25. MAGNESIUM [Concomitant]
     Active Substance: MAGNESIUM
  26. OXYGEN [Concomitant]
     Active Substance: OXYGEN
  27. VITAMIN B12 [Concomitant]
     Active Substance: CYANOCOBALAMIN

REACTIONS (1)
  - Condition aggravated [Unknown]
